FAERS Safety Report 4667386-4 (Version None)
Quarter: 2005Q2

REPORT INFORMATION
  Report Type: 
  Country: None (occurrence: None)
  Receive Date: 20050520
  Receipt Date: 20050509
  Transmission Date: 20051028
  Serious: Yes (Other)
  Sender: FDA-Public Use
  Company Number: AT-ABBOTT-05P-009-0300143-00

PATIENT
  Sex: Male

DRUGS (2)
  1. EPILIM LIQUID [Suspect]
     Indication: DRUG USE FOR UNKNOWN INDICATION
     Route: 048
  2. EPILIM LIQUID [Suspect]
     Route: 048
     Dates: start: 20041001

REACTIONS (4)
  - BALANCE DISORDER [None]
  - DRUG INEFFECTIVE [None]
  - EPILEPSY [None]
  - MUSCLE TWITCHING [None]
